FAERS Safety Report 14070667 (Version 1)
Quarter: 2017Q4

REPORT INFORMATION
  Report Type: Spontaneous
  Country: US (occurrence: US)
  Receive Date: 20171010
  Receipt Date: 20171010
  Transmission Date: 20180321
  Serious: No
  Sender: FDA-Public Use
  Company Number: US-BAUSCH-BL-2016-023657

PATIENT
  Age: 73 Year
  Sex: Female

DRUGS (2)
  1. METRONIDAZOLE. [Suspect]
     Active Substance: METRONIDAZOLE
     Indication: VAGINAL INFECTION
     Route: 067
     Dates: start: 20160922
  2. SYNTHROID [Concomitant]
     Active Substance: LEVOTHYROXINE SODIUM
     Indication: THYROID DISORDER
     Route: 048

REACTIONS (5)
  - Discomfort [Unknown]
  - Flatulence [Unknown]
  - Nausea [Recovering/Resolving]
  - Abdominal pain upper [Unknown]
  - Dysgeusia [Unknown]

NARRATIVE: CASE EVENT DATE: 2016
